FAERS Safety Report 24989253 (Version 3)
Quarter: 2025Q2

REPORT INFORMATION
  Report Type: Spontaneous
  Country: GB (occurrence: GB)
  Receive Date: 20250220
  Receipt Date: 20250401
  Transmission Date: 20250717
  Serious: Yes (Other)
  Sender: DR REDDYS
  Company Number: None

PATIENT
  Sex: Female

DRUGS (4)
  1. DOXORUBICIN [Suspect]
     Active Substance: DOXORUBICIN
     Indication: Anaplastic large cell lymphoma T- and null-cell types
  2. PREDNISOLONE [Suspect]
     Active Substance: PREDNISOLONE
     Indication: Anaplastic large cell lymphoma T- and null-cell types
  3. BRENTUXIMAB VEDOTIN [Suspect]
     Active Substance: BRENTUXIMAB VEDOTIN
     Indication: Anaplastic large cell lymphoma T- and null-cell types
  4. CYCLOPHOSPHAMIDE [Suspect]
     Active Substance: CYCLOPHOSPHAMIDE
     Indication: Anaplastic large cell lymphoma T- and null-cell types

REACTIONS (2)
  - Anaplastic large cell lymphoma T- and null-cell types recurrent [Unknown]
  - Skin lesion [Unknown]
